FAERS Safety Report 8099738-7 (Version None)
Quarter: 2012Q1

REPORT INFORMATION
  Report Type: 
  Country: None (occurrence: None)
  Receive Date: 20120129
  Receipt Date: 20110915
  Transmission Date: 20120608
  Serious: No
  Sender: FDA-Public Use
  Company Number: US-ABBOTT-11P-163-0855386-00

PATIENT
  Sex: Female

DRUGS (12)
  1. ZOCOR [Concomitant]
     Indication: BLOOD CHOLESTEROL INCREASED
  2. PREDNISONE TAB [Concomitant]
     Indication: RHEUMATOID ARTHRITIS
  3. HUMIRA [Suspect]
     Indication: RHEUMATOID ARTHRITIS
     Dates: start: 20110301
  4. NEURONTIN [Concomitant]
     Indication: NEUROPATHY PERIPHERAL
  5. METHOTREXATE [Concomitant]
     Indication: RHEUMATOID ARTHRITIS
  6. ACIPHEX [Concomitant]
     Indication: GASTROOESOPHAGEAL REFLUX DISEASE
  7. LEUCOVORIN CALCIUM [Concomitant]
     Indication: PRODUCT USED FOR UNKNOWN INDICATION
  8. TRAMADOL HCL [Concomitant]
     Indication: PAIN
  9. ZOLOFT [Concomitant]
     Indication: DEPRESSION
  10. TEMAZEPAM [Concomitant]
     Indication: INSOMNIA
  11. LEVOTHYROXINE SODIUM [Concomitant]
     Indication: THYROID FUNCTION TEST ABNORMAL
  12. METHENAMINE HIPPURATE [Concomitant]
     Indication: BLADDER IRRIGATION

REACTIONS (1)
  - SKIN ULCER [None]
